FAERS Safety Report 18158045 (Version 1)
Quarter: 2020Q3

REPORT INFORMATION
  Report Type: Spontaneous
  Country: US (occurrence: US)
  Receive Date: 20200817
  Receipt Date: 20200817
  Transmission Date: 20201103
  Serious: No
  Sender: FDA-Public Use
  Company Number: US-MEDEXUS PHARMA, INC.-2020MED00128

PATIENT
  Age: 69 Year
  Sex: Female
  Weight: 62.59 kg

DRUGS (10)
  1. RASUVO [Suspect]
     Active Substance: METHOTREXATE SODIUM
     Dosage: 25 MG, 1X/WEEK INJECTED INTO THE LEG
     Dates: end: 201912
  2. FOLIC ACID. [Concomitant]
     Active Substance: FOLIC ACID
  3. PEPCID [Concomitant]
     Active Substance: FAMOTIDINE
  4. POTASSIUM [Concomitant]
     Active Substance: POTASSIUM
  5. UNSPECIFIED CHOLESTEROL MEDICINE [Concomitant]
  6. UNSPECIFIED THYROID MEDICINE [Concomitant]
  7. VITAMIN D [Concomitant]
     Active Substance: VITAMIN D NOS
  8. RASUVO [Suspect]
     Active Substance: METHOTREXATE SODIUM
     Indication: RHEUMATOID ARTHRITIS
     Dosage: 25 MG, 1X/WEEK INJECTED INTO THE LEG
  9. NORTRIPTYLINE [Concomitant]
     Active Substance: NORTRIPTYLINE
  10. PREDNISONE. [Concomitant]
     Active Substance: PREDNISONE

REACTIONS (4)
  - Rheumatoid arthritis [Recovered/Resolved]
  - Rheumatoid nodule [Unknown]
  - Product dose omission issue [Recovered/Resolved]
  - Device failure [Recovered/Resolved]

NARRATIVE: CASE EVENT DATE: 201912
